FAERS Safety Report 23140535 (Version 2)
Quarter: 2023Q4

REPORT INFORMATION
  Report Type: Spontaneous
  Country: IR (occurrence: None)
  Receive Date: 20231102
  Receipt Date: 20231108
  Transmission Date: 20240110
  Serious: Yes (Other)
  Sender: FDA-Public Use
  Company Number: IR-ROCHE-3447131

PATIENT

DRUGS (1)
  1. AVASTIN [Suspect]
     Active Substance: BEVACIZUMAB
     Indication: Eye disorder
     Route: 050

REACTIONS (4)
  - Suspected transmission of an infectious agent via product [Unknown]
  - Bacillus infection [Unknown]
  - Off label use [Unknown]
  - Suspected counterfeit product [Unknown]
